FAERS Safety Report 5363042-8 (Version None)
Quarter: 2007Q2

REPORT INFORMATION
  Report Type: 
  Country: None (occurrence: None)
  Receive Date: 20070618
  Receipt Date: 20070612
  Transmission Date: 20071010
  Serious: Yes (Death, Other)
  Sender: FDA-Public Use
  Company Number: 2007SP011866

PATIENT

DRUGS (1)
  1. TEMOZOLOMIDE [Suspect]
     Indication: DRUG USE FOR UNKNOWN INDICATION
     Dosage: 5, PO
     Route: 048

REACTIONS (1)
  - BONE MARROW FAILURE [None]
